FAERS Safety Report 16381210 (Version 1)
Quarter: 2019Q2

REPORT INFORMATION
  Report Type: Spontaneous
  Country: US (occurrence: US)
  Receive Date: 20190603
  Receipt Date: 20190603
  Transmission Date: 20190711
  Serious: No
  Sender: FDA-Public Use
  Company Number: US-JNJFOC-20190523480

PATIENT
  Sex: Male

DRUGS (2)
  1. TYLENOL CHILD CHEWABLE [Suspect]
     Active Substance: ACETAMINOPHEN
     Route: 048
  2. TYLENOL CHILD CHEWABLE [Suspect]
     Active Substance: ACETAMINOPHEN
     Indication: ACCIDENTAL EXPOSURE TO PRODUCT
     Route: 048

REACTIONS (1)
  - Accidental exposure to product [Unknown]
